FAERS Safety Report 21071277 (Version 2)
Quarter: 2022Q3

REPORT INFORMATION
  Report Type: Spontaneous
  Country: FI (occurrence: FI)
  Receive Date: 20220712
  Receipt Date: 20220717
  Transmission Date: 20221026
  Serious: Yes (Other)
  Sender: FDA-Public Use
  Company Number: FI-ORGANON-O2207FIN000911

PATIENT
  Age: 8 Year
  Sex: Female

DRUGS (1)
  1. EBASTINE [Suspect]
     Active Substance: EBASTINE
     Indication: Urticaria
     Dosage: UNK (SINCE SHE WAS 2 YEARS OLD)
     Route: 048

REACTIONS (3)
  - Hepatic failure [Unknown]
  - Growth accelerated [Unknown]
  - Manganese increased [Unknown]
